FAERS Safety Report 8004020-X (Version None)
Quarter: 2011Q4

REPORT INFORMATION
  Report Type: 
  Country: None (occurrence: None)
  Receive Date: 20111222
  Receipt Date: 20111214
  Transmission Date: 20120403
  Serious: Yes (Other)
  Sender: FDA-Public Use
  Company Number: JP-MERCK-1112USA00863

PATIENT

DRUGS (1)
  1. PEPCID [Suspect]
     Route: 065

REACTIONS (1)
  - RHABDOMYOLYSIS [None]
